FAERS Safety Report 21500028 (Version 5)
Quarter: 2022Q4

REPORT INFORMATION
  Report Type: Spontaneous
  Country: US (occurrence: US)
  Receive Date: 20221024
  Receipt Date: 20221206
  Transmission Date: 20230113
  Serious: Yes (Other)
  Sender: FDA-Public Use
  Company Number: US-PFIZER INC-PV202200087930

PATIENT
  Age: 72 Year
  Sex: Male

DRUGS (2)
  1. RAPAMUNE [Suspect]
     Active Substance: SIROLIMUS
     Dosage: 3 MG, DAILY (3 TABLETS DAILY)
     Route: 048
  2. RAPAMUNE [Suspect]
     Active Substance: SIROLIMUS
     Dosage: 4 MG, DAILY (4 TABLETS BY MOUTH DAILY WITH BREAKFAST)
     Route: 048

REACTIONS (2)
  - Heart transplant [Unknown]
  - Product prescribing error [Unknown]
